FAERS Safety Report 10480989 (Version 1)
Quarter: 2014Q3

REPORT INFORMATION
  Report Type: Spontaneous
  Country: US (occurrence: US)
  Receive Date: 20140929
  Receipt Date: 20140929
  Transmission Date: 20150326
  Serious: Yes (Hospitalization)
  Sender: FDA-Public Use
  Company Number: US-DRREDDYS-USA/USA/14/0038384

PATIENT
  Age: 53 Year
  Sex: Male

DRUGS (6)
  1. VICODIN ES [Concomitant]
     Active Substance: ACETAMINOPHEN\HYDROCODONE BITARTRATE
     Indication: PAIN
     Route: 048
  2. WARFARIN [Interacting]
     Active Substance: WARFARIN
     Indication: COAGULOPATHY
     Dosage: 2 MG ON MONDAY, WEDNESDAY AND FRIDAY AND 1 MG TUESDAY, THURSDAY, SATURDAY, AND SUNDAY FOR THE PAST 2
     Route: 065
  3. ALBUTEROL. [Concomitant]
     Active Substance: ALBUTEROL
     Indication: PRODUCT USED FOR UNKNOWN INDICATION
     Dosage: AS NEEDED
     Route: 045
  4. AMOXICILLIN/CLAVULANATE POTASSIUM [Suspect]
     Active Substance: AMOXICILLIN\CLAVULANATE POTASSIUM
     Indication: TOOTH ABSCESS
     Route: 065
  5. TRAZODONE [Concomitant]
     Active Substance: TRAZODONE HYDROCHLORIDE
     Indication: PRODUCT USED FOR UNKNOWN INDICATION
     Route: 048
  6. CHLORDIAZEPOXIDE [Concomitant]
     Active Substance: CHLORDIAZEPOXIDE
     Indication: PRODUCT USED FOR UNKNOWN INDICATION
     Dosage: 10 MG PO 1 TO 3 TIMES A DAY
     Route: 048

REACTIONS (7)
  - Occult blood [Unknown]
  - Contusion [Unknown]
  - International normalised ratio increased [Recovered/Resolved]
  - Toxicity to various agents [Recovered/Resolved]
  - Post procedural haemorrhage [Recovered/Resolved]
  - Haematuria [Unknown]
  - Drug interaction [Unknown]
